FAERS Safety Report 4497378-X (Version None)
Quarter: 2004Q4

REPORT INFORMATION
  Report Type: 
  Country: None (occurrence: None)
  Receive Date: 20041104
  Receipt Date: 20041021
  Transmission Date: 20050328
  Serious: Yes (Hospitalization)
  Sender: FDA-Public Use
  Company Number: FABR-10845

PATIENT
  Age: 58 Year
  Sex: Male
  Weight: 71 kg

DRUGS (5)
  1. FABRAZYME [Suspect]
     Indication: FABRY'S DISEASE
     Dosage: 70 MG Q2WKS IV
     Route: 042
     Dates: start: 20030718
  2. COUMADIN [Concomitant]
  3. CELLCEPT [Concomitant]
  4. BACTRIM [Concomitant]
  5. NEORAL [Concomitant]

REACTIONS (1)
  - DEEP VEIN THROMBOSIS [None]
